FAERS Safety Report 22197912 (Version 1)
Quarter: 2023Q2

REPORT INFORMATION
  Report Type: Spontaneous
  Country: GB (occurrence: GB)
  Receive Date: 20230411
  Receipt Date: 20230411
  Transmission Date: 20230721
  Serious: Yes (Hospitalization)
  Sender: FDA-Public Use
  Company Number: GB-MHRA-MED-202202231739097410-LJFBF

PATIENT
  Age: 62 Year
  Sex: Male

DRUGS (3)
  1. XARELTO [Suspect]
     Active Substance: RIVAROXABAN
     Indication: Anticoagulant therapy
     Dosage: 10 MG, QD
     Route: 048
     Dates: start: 202201, end: 20220220
  2. LEFLUNOMIDE [Concomitant]
     Active Substance: LEFLUNOMIDE
     Dosage: UNK
  3. PREDNISOLONE [Concomitant]
     Active Substance: PREDNISOLONE
     Dosage: UNK

REACTIONS (1)
  - Deep vein thrombosis [Not Recovered/Not Resolved]

NARRATIVE: CASE EVENT DATE: 20220220
